FAERS Safety Report 8250935-7 (Version None)
Quarter: 2012Q2

REPORT INFORMATION
  Report Type: 
  Country: None (occurrence: None)
  Receive Date: 20120402
  Receipt Date: 20120320
  Transmission Date: 20120825
  Serious: Yes (Other)
  Sender: FDA-Public Use
  Company Number: US-SANOFI-AVENTIS-2012SA019507

PATIENT
  Age: 31 Year
  Sex: Male

DRUGS (1)
  1. UNISOM [Suspect]
     Route: 065
     Dates: start: 20120318, end: 20120318

REACTIONS (2)
  - SUICIDAL IDEATION [None]
  - HYPERHIDROSIS [None]
